FAERS Safety Report 7135160-5 (Version None)
Quarter: 2010Q4

REPORT INFORMATION
  Report Type: 
  Country: None (occurrence: None)
  Receive Date: 20101203
  Receipt Date: 20101201
  Transmission Date: 20110411
  Serious: Yes (Other)
  Sender: FDA-Public Use
  Company Number: US-PFIZER INC-2010161965

PATIENT

DRUGS (2)
  1. ZOSYN [Suspect]
     Dosage: UNK
  2. VANCOMYCIN [Suspect]
     Dosage: UNK

REACTIONS (2)
  - BLOOD CREATININE INCREASED [None]
  - TUBULOINTERSTITIAL NEPHRITIS [None]
